FAERS Safety Report 9922785 (Version 2)
Quarter: 2014Q1

REPORT INFORMATION
  Report Type: Spontaneous
  Country: AU (occurrence: AU)
  Receive Date: 20140225
  Receipt Date: 20140305
  Transmission Date: 20141002
  Serious: Yes (Hospitalization)
  Sender: FDA-Public Use
  Company Number: AU-009507513-1402AUS008479

PATIENT
  Age: 48 Year
  Sex: Female

DRUGS (4)
  1. MIRTAZAPINE GA [Suspect]
     Dosage: 15 MG, DAILY
     Route: 048
  2. MIRTAZAPINE GA [Interacting]
     Dosage: 30MG/DAY
     Route: 048
  3. MIRTAZAPINE GA [Interacting]
     Dosage: 15 MG, DAILY
     Route: 048
  4. VENLAFAXINE HYDROCHLORIDE [Interacting]
     Dosage: DOSE UNSPECIFIED

REACTIONS (4)
  - Tenderness [Recovered/Resolved]
  - Oedema peripheral [Recovered/Resolved]
  - Oedema [Recovered/Resolved]
  - Drug interaction [Recovered/Resolved]
